FAERS Safety Report 9550555 (Version 2)
Quarter: 2014Q2

REPORT INFORMATION
  Report Type: Spontaneous
  Country: US (occurrence: US)
  Receive Date: 20130924
  Receipt Date: 20140402
  Transmission Date: 20141212
  Serious: No
  Sender: FDA-Public Use
  Company Number: US-SANOFI-AVENTIS-2013SA033394

PATIENT
  Age: 41 Year
  Sex: Female
  Weight: 122 kg

DRUGS (7)
  1. AUBAGIO [Suspect]
     Indication: MULTIPLE SCLEROSIS
     Route: 048
     Dates: start: 20130215, end: 20130807
  2. AUBAGIO [Suspect]
     Indication: MULTIPLE SCLEROSIS
     Route: 048
     Dates: start: 20130215, end: 20130807
  3. ANTIDEPRESSANTS [Concomitant]
     Indication: DEPRESSION
     Dates: start: 2007
  4. GABAPENTIN [Concomitant]
     Indication: NEURALGIA
     Route: 065
     Dates: start: 201210
  5. LEVOTHYROXINE [Concomitant]
     Indication: THYROID DISORDER
     Route: 065
     Dates: start: 1996
  6. PRISTIQ [Concomitant]
     Indication: DEPRESSION
     Route: 065
     Dates: start: 2010
  7. REQUIP [Concomitant]
     Indication: RESTLESSNESS
     Route: 065
     Dates: start: 2013

REACTIONS (7)
  - Multiple sclerosis relapse [Not Recovered/Not Resolved]
  - Confusional state [Not Recovered/Not Resolved]
  - Gait disturbance [Not Recovered/Not Resolved]
  - Fatigue [Unknown]
  - Diarrhoea [Not Recovered/Not Resolved]
  - Hepatic enzyme increased [Not Recovered/Not Resolved]
  - Drug dose omission [Unknown]
